FAERS Safety Report 4925388-4 (Version None)
Quarter: 2006Q1

REPORT INFORMATION
  Report Type: 
  Country: None (occurrence: None)
  Receive Date: 20060228
  Receipt Date: 20050211
  Transmission Date: 20060701
  Serious: Yes (Life-Threatening, Other)
  Sender: FDA-Public Use
  Company Number: US-GLAXOSMITHKLINE-A0545181A

PATIENT
  Age: 31 Year
  Sex: Female

DRUGS (7)
  1. LAMICTAL [Suspect]
     Indication: BIPOLAR DISORDER
     Route: 048
     Dates: start: 20050107, end: 20050127
  2. ETHANOL [Concomitant]
     Route: 048
  3. KLONOPIN [Concomitant]
     Dosage: .5MG AT NIGHT
     Route: 048
  4. EFFEXOR XR [Concomitant]
     Dosage: 150MG IN THE MORNING
     Route: 048
  5. SEROQUEL [Concomitant]
     Dosage: 200MG AT NIGHT
     Route: 048
  6. AMPHETAMINE [Concomitant]
  7. OTHER MEDICATIONS [Concomitant]

REACTIONS (4)
  - SKIN DISCOLOURATION [None]
  - SKIN EXFOLIATION [None]
  - SKIN LESION [None]
  - STEVENS-JOHNSON SYNDROME [None]
